FAERS Safety Report 13875563 (Version 2)
Quarter: 2017Q3

REPORT INFORMATION
  Report Type: Spontaneous
  Country: ES (occurrence: ES)
  Receive Date: 20170817
  Receipt Date: 20170828
  Transmission Date: 20171127
  Serious: Yes (Other)
  Sender: FDA-Public Use
  Company Number: ES-UCBSA-2017031742

PATIENT
  Age: 76 Year
  Sex: Female

DRUGS (2)
  1. LUMINAL [Concomitant]
     Active Substance: PHENOBARBITAL SODIUM
     Indication: PRODUCT USED FOR UNKNOWN INDICATION
  2. CIMZIA [Suspect]
     Active Substance: CERTOLIZUMAB PEGOL
     Indication: POLYMYALGIA RHEUMATICA
     Dosage: 200 MG, 2X/MONTH
     Route: 058
     Dates: start: 20161021, end: 20170521

REACTIONS (3)
  - Concomitant disease aggravated [Recovering/Resolving]
  - Tooth infection [Recovered/Resolved]
  - Depression [Recovering/Resolving]

NARRATIVE: CASE EVENT DATE: 20170117
